FAERS Safety Report 14304566 (Version 1)
Quarter: 2017Q4

REPORT INFORMATION
  Report Type: Report from Study
  Country: ES (occurrence: ES)
  Receive Date: 20171219
  Receipt Date: 20171219
  Transmission Date: 20180321
  Serious: Yes (Other)
  Sender: FDA-Public Use
  Company Number: ES-OTSUKA-EU-2012-10081

PATIENT
  Age: 24 Year
  Sex: Female
  Weight: 74.3 kg

DRUGS (9)
  1. ALPRAZOLAM. [Interacting]
     Active Substance: ALPRAZOLAM
     Indication: ANXIETY
     Dosage: 0.25 MG, QD
     Route: 048
     Dates: start: 201010, end: 201107
  2. ABILIFY [Concomitant]
     Active Substance: ARIPIPRAZOLE
     Indication: OBSESSIVE-COMPULSIVE DISORDER
     Dosage: 2.5 MG, UNK
     Route: 065
     Dates: start: 20110322, end: 20110329
  3. ALPRAZOLAM. [Interacting]
     Active Substance: ALPRAZOLAM
     Indication: ANXIETY
     Dosage: .25 MG, QD
     Route: 048
     Dates: start: 201010, end: 201107
  4. SERTRALINE [Interacting]
     Active Substance: SERTRALINE HYDROCHLORIDE
     Indication: OBSESSIVE-COMPULSIVE DISORDER
     Dosage: OCT2010-03MAY2011 100MG  DOSE REDUCED TO 50MG/D FROM 05MAR11-AUG11
     Route: 048
     Dates: start: 201010, end: 201108
  5. ARIPIPRAZOLE. [Suspect]
     Active Substance: ARIPIPRAZOLE
     Indication: OBSESSIVE-COMPULSIVE DISORDER
     Dosage: 2.5 MG, UNK
     Route: 048
     Dates: start: 20110322, end: 20110329
  6. SERTRALINE [Interacting]
     Active Substance: SERTRALINE HYDROCHLORIDE
     Indication: OBSESSIVE-COMPULSIVE DISORDER
     Dosage: 100 MG, QD
     Route: 048
     Dates: start: 201010, end: 20110503
  7. ABILIFY [Concomitant]
     Active Substance: ARIPIPRAZOLE
     Dosage: 5 MG, UNK
     Route: 065
     Dates: start: 20110329
  8. ARIPIPRAZOLE. [Interacting]
     Active Substance: ARIPIPRAZOLE
     Dosage: 5 MG, UNK
     Route: 048
     Dates: start: 20110329
  9. SERTRALINE [Interacting]
     Active Substance: SERTRALINE HYDROCHLORIDE
     Dosage: 50 MG, QD
     Route: 048
     Dates: start: 20110503, end: 201108

REACTIONS (2)
  - Abnormal weight gain [Unknown]
  - Drug interaction [Unknown]

NARRATIVE: CASE EVENT DATE: 20110622
